FAERS Safety Report 18845416 (Version 1)
Quarter: 2021Q1

REPORT INFORMATION
  Report Type: Spontaneous
  Country: US (occurrence: US)
  Receive Date: 20210203
  Receipt Date: 20210203
  Transmission Date: 20210419
  Serious: Yes (Hospitalization)
  Sender: FDA-Public Use
  Company Number: None

PATIENT
  Age: 78 Year
  Sex: Male
  Weight: 69 kg

DRUGS (1)
  1. PEMBROLIZUMAB (PEMBROLIZUMAB 25MG/ML INJ, SOLN, 4ML) [Suspect]
     Active Substance: PEMBROLIZUMAB
     Indication: TRANSITIONAL CELL CARCINOMA
     Dosage: ?          OTHER FREQUENCY:UNKNOWN;OTHER ROUTE:IV?
     Dates: start: 20200812, end: 20201214

REACTIONS (3)
  - Adrenal insufficiency [None]
  - Hypomagnesaemia [None]
  - Hyponatraemia [None]

NARRATIVE: CASE EVENT DATE: 20201215
